FAERS Safety Report 5343758-X (Version None)
Quarter: 2007Q2

REPORT INFORMATION
  Report Type: 
  Country: None (occurrence: None)
  Receive Date: 20070531
  Receipt Date: 20070531
  Transmission Date: 20071010
  Serious: Yes (Life-Threatening, Disabling, Other)
  Sender: FDA-Public Use
  Company Number: None

PATIENT
  Age: 54 Year
  Sex: Male
  Weight: 117.9352 kg

DRUGS (4)
  1. AVANDAMET [Suspect]
     Indication: DIABETES MELLITUS NON-INSULIN-DEPENDENT
     Dosage: 1     TIMES DAILY
     Dates: start: 20030801, end: 20060101
  2. METFORMIN HCL [Suspect]
     Indication: DIABETES MELLITUS NON-INSULIN-DEPENDENT
     Dosage: 1                        1 TIMES DAILY
     Dates: start: 20030101, end: 20060101
  3. AVANDIA [Suspect]
     Indication: DIABETES MELLITUS NON-INSULIN-DEPENDENT
     Dates: start: 20030101, end: 20060101
  4. METFORMIN HCL [Concomitant]

REACTIONS (5)
  - CHEST PAIN [None]
  - DRY EYE [None]
  - HEART RATE INCREASED [None]
  - MACULAR DEGENERATION [None]
  - VISUAL DISTURBANCE [None]
